FAERS Safety Report 22042434 (Version 3)
Quarter: 2023Q2

REPORT INFORMATION
  Report Type: Spontaneous
  Country: JP (occurrence: JP)
  Receive Date: 20230228
  Receipt Date: 20230511
  Transmission Date: 20230722
  Serious: Yes (Other)
  Sender: FDA-Public Use
  Company Number: JP-TAKEDA-2023TJP001579

PATIENT
  Age: 65 Year
  Sex: Male
  Weight: 52 kg

DRUGS (7)
  1. TEDUGLUTIDE [Suspect]
     Active Substance: TEDUGLUTIDE
     Indication: Short-bowel syndrome
     Dosage: 1.3 MILLIGRAM, QD
     Route: 058
     Dates: start: 20221206, end: 20230213
  2. TEDUGLUTIDE [Suspect]
     Active Substance: TEDUGLUTIDE
     Indication: Short-bowel syndrome
     Dosage: 1.3 MILLIGRAM, QD
     Route: 058
     Dates: start: 20221206, end: 20230213
  3. TEDUGLUTIDE [Suspect]
     Active Substance: TEDUGLUTIDE
     Indication: Short-bowel syndrome
     Dosage: 1.3 MILLIGRAM, QD
     Route: 058
     Dates: start: 20221206, end: 20230213
  4. TEDUGLUTIDE [Suspect]
     Active Substance: TEDUGLUTIDE
     Indication: Short-bowel syndrome
     Dosage: 1.3 MILLIGRAM, QD
     Route: 058
     Dates: start: 20221206, end: 20230213
  5. HUMIRA [Concomitant]
     Active Substance: ADALIMUMAB
     Indication: Crohn^s disease
     Dosage: 40 MILLIGRAM, Q2WEEKS
     Route: 058
     Dates: start: 201503
  6. PENTASA [Concomitant]
     Active Substance: MESALAMINE
     Indication: Crohn^s disease
     Dosage: 3 GRAM, QD
     Route: 048
  7. AMINO ACIDS\CARBOHYDRATES\MINERALS\SOYBEAN OIL\VITAMINS [Concomitant]
     Active Substance: AMINO ACIDS\CARBOHYDRATES\MINERALS\SOYBEAN OIL\VITAMINS
     Indication: Crohn^s disease
     Dosage: 2 DOSAGE FORM, QD
     Route: 048

REACTIONS (4)
  - Crohn^s disease [Recovered/Resolved]
  - Fistula of small intestine [Recovered/Resolved]
  - Dehydration [Recovered/Resolved]
  - Gastrointestinal stoma output increased [Recovered/Resolved]

NARRATIVE: CASE EVENT DATE: 20230202
